FAERS Safety Report 5384498-0 (Version None)
Quarter: 2007Q3

REPORT INFORMATION
  Report Type: 
  Country: None (occurrence: None)
  Receive Date: 20070711
  Receipt Date: 20070629
  Transmission Date: 20080115
  Serious: Yes (Other)
  Sender: FDA-Public Use
  Company Number: IE-PFIZER INC-2007054858

PATIENT
  Sex: Male

DRUGS (1)
  1. EPANUTIN [Suspect]
     Indication: EPILEPSY
     Route: 048

REACTIONS (3)
  - DRUG TOXICITY [None]
  - REACTION TO FOOD ADDITIVE [None]
  - SOMNOLENCE [None]
